FAERS Safety Report 9296224 (Version 1)
Quarter: 2013Q2

REPORT INFORMATION
  Report Type: Spontaneous
  Country: GB (occurrence: GB)
  Receive Date: 20130517
  Receipt Date: 20130517
  Transmission Date: 20140414
  Serious: Yes (Hospitalization)
  Sender: FDA-Public Use
  Company Number: GB-BRISTOL-MYERS SQUIBB COMPANY-18888537

PATIENT
  Age: 65 Year
  Sex: Female

DRUGS (3)
  1. YERVOY [Suspect]
     Indication: MALIGNANT MELANOMA
     Dosage: 2ND CYCLE ON 14-MAR-2013 AND 3RD CYCLE ON 04-APR-2013
     Dates: start: 20130221
  2. PREGABALIN [Concomitant]
  3. PARACETAMOL [Concomitant]

REACTIONS (8)
  - Pyrexia [Not Recovered/Not Resolved]
  - Incoherent [Not Recovered/Not Resolved]
  - Emotional disorder [Not Recovered/Not Resolved]
  - Altered state of consciousness [Not Recovered/Not Resolved]
  - Chills [Not Recovered/Not Resolved]
  - Confusional state [Not Recovered/Not Resolved]
  - Night sweats [Not Recovered/Not Resolved]
  - Asthenia [Unknown]
